FAERS Safety Report 5226956-5 (Version None)
Quarter: 2007Q1

REPORT INFORMATION
  Report Type: 
  Country: None (occurrence: None)
  Receive Date: 20070202
  Receipt Date: 20070123
  Transmission Date: 20070707
  Serious: Yes (Other)
  Sender: FDA-Public Use
  Company Number: PHBS2006JP15085

PATIENT
  Age: 66 Year
  Sex: Male

DRUGS (4)
  1. LAMISIL [Suspect]
     Indication: NAIL TINEA
     Dosage: 125 MG/DAY
     Route: 048
     Dates: start: 20060703, end: 20060924
  2. ANPLAG [Concomitant]
     Route: 048
  3. MAGLAX [Concomitant]
     Route: 048
  4. HALCION [Concomitant]
     Route: 048

REACTIONS (6)
  - BLOOD UREA INCREASED [None]
  - BREAST DISCOMFORT [None]
  - BREAST PAIN [None]
  - GYNAECOMASTIA [None]
  - LIPOMA OF BREAST [None]
  - SURGERY [None]
